FAERS Safety Report 23723530 (Version 1)
Quarter: 2024Q2

REPORT INFORMATION
  Report Type: Spontaneous
  Country: US (occurrence: US)
  Receive Date: 20240409
  Receipt Date: 20240409
  Transmission Date: 20240716
  Serious: No
  Sender: FDA-Public Use
  Company Number: US-SANOFI-02002892

PATIENT
  Sex: Female
  Weight: 54.43 kg

DRUGS (1)
  1. LOVENOX [Suspect]
     Active Substance: ENOXAPARIN SODIUM
     Indication: Pulmonary thrombosis
     Dosage: 60 MG, Q12H

REACTIONS (1)
  - Off label use [Unknown]
